FAERS Safety Report 15009249 (Version 2)
Quarter: 2020Q3

REPORT INFORMATION
  Report Type: Spontaneous
  Country: US (occurrence: US)
  Receive Date: 20180614
  Receipt Date: 20200929
  Transmission Date: 20201102
  Serious: No
  Sender: FDA-Public Use
  Company Number: US-ELI_LILLY_AND_COMPANY-US201806005951

PATIENT
  Age: 62 Year
  Sex: Female

DRUGS (19)
  1. HUMULIN R U?500 [Suspect]
     Active Substance: INSULIN HUMAN
     Indication: TYPE 2 DIABETES MELLITUS
     Dosage: 90 U, BID (SLIDING SCALE)
     Route: 065
     Dates: start: 201606
  2. HUMULIN R U?500 [Suspect]
     Active Substance: INSULIN HUMAN
     Indication: TYPE 2 DIABETES MELLITUS
     Dosage: 90 U, BID (SLIDING SCALE)
     Route: 065
     Dates: start: 201606
  3. HUMULIN R U?500 [Suspect]
     Active Substance: INSULIN HUMAN
     Indication: TYPE 2 DIABETES MELLITUS
     Dosage: 90 U, BID (SLIDING SCALE)
     Route: 065
     Dates: start: 201606
  4. HUMULIN R U?500 [Suspect]
     Active Substance: INSULIN HUMAN
     Dosage: 100 U, EACH EVENING (NIGHT)
     Route: 065
  5. HUMULIN R U?500 [Suspect]
     Active Substance: INSULIN HUMAN
     Dosage: 100 U, EACH EVENING (NIGHT)
     Route: 065
  6. HUMULIN R U?500 [Suspect]
     Active Substance: INSULIN HUMAN
     Dosage: 100 U, EACH EVENING (NIGHT)
     Route: 065
  7. HUMULIN R U?500 [Suspect]
     Active Substance: INSULIN HUMAN
     Dosage: 70 U, UNKNOWN
     Route: 065
  8. HUMULIN R U?500 [Suspect]
     Active Substance: INSULIN HUMAN
     Dosage: 90 U, BID (SLIDING SCALE)
     Route: 065
  9. HUMULIN R U?500 [Suspect]
     Active Substance: INSULIN HUMAN
     Dosage: 90 U, BID (SLIDING SCALE)
     Route: 065
  10. HUMULIN R U?500 [Suspect]
     Active Substance: INSULIN HUMAN
     Dosage: 90 U, BID (SLIDING SCALE)
     Route: 065
  11. HUMULIN R U?500 [Suspect]
     Active Substance: INSULIN HUMAN
     Dosage: 60 U, EACH MORNING
     Route: 065
  12. HUMULIN R U?500 [Suspect]
     Active Substance: INSULIN HUMAN
     Dosage: 90 U, BID (SLIDING SCALE)
     Route: 065
  13. HUMULIN R U?500 [Suspect]
     Active Substance: INSULIN HUMAN
     Dosage: 60 U, EACH MORNING
     Route: 065
  14. METFORMIN [Concomitant]
     Active Substance: METFORMIN HYDROCHLORIDE
     Indication: TYPE 2 DIABETES MELLITUS
  15. HUMULIN R U?500 [Suspect]
     Active Substance: INSULIN HUMAN
     Indication: TYPE 2 DIABETES MELLITUS
     Dosage: 90 U, BID (SLIDING SCALE)
     Route: 065
     Dates: start: 201606
  16. HUMULIN R U?500 [Suspect]
     Active Substance: INSULIN HUMAN
     Dosage: 70 U, UNKNOWN
     Route: 065
  17. HUMULIN R U?500 [Suspect]
     Active Substance: INSULIN HUMAN
     Dosage: 70 U, UNKNOWN
     Route: 065
  18. HUMULIN R U?500 [Suspect]
     Active Substance: INSULIN HUMAN
     Dosage: 60 U, EACH MORNING
     Route: 065
  19. HUMULIN R [Concomitant]
     Active Substance: INSULIN HUMAN
     Indication: TYPE 2 DIABETES MELLITUS

REACTIONS (2)
  - Injection site induration [Unknown]
  - Blood glucose increased [Unknown]

NARRATIVE: CASE EVENT DATE: 20180612
